FAERS Safety Report 13266306 (Version 3)
Quarter: 2017Q3

REPORT INFORMATION
  Report Type: Spontaneous
  Country: JP (occurrence: JP)
  Receive Date: 20170223
  Receipt Date: 20170901
  Transmission Date: 20171127
  Serious: Yes (Hospitalization)
  Sender: FDA-Public Use
  Company Number: JP-IMPAX LABORATORIES, INC-2017-IPXL-00377

PATIENT
  Age: 44 Year
  Sex: Female
  Weight: 51 kg

DRUGS (7)
  1. METOCLOPRAMIDE HYDROCHLORIDE IR [Suspect]
     Active Substance: METOCLOPRAMIDE HYDROCHLORIDE
     Indication: NAUSEA
     Dosage: 30 MG, INTRAVENOUS DRIP INFUSION
     Route: 041
     Dates: start: 19880702
  2. TAGAMET [Suspect]
     Active Substance: CIMETIDINE
     Indication: NAUSEA
     Dosage: 200 MG, EVERY 6 HOURS
     Route: 065
     Dates: start: 19880702
  3. GLUCOSE [Concomitant]
     Active Substance: DEXTROSE
     Indication: SUPPLEMENTATION THERAPY
     Dosage: INTRAVENOUS DRIP INFUSION OF 5% GLUCOSE
     Route: 041
     Dates: start: 19880702
  4. METOCLOPRAMIDE HYDROCHLORIDE IR [Suspect]
     Active Substance: METOCLOPRAMIDE HYDROCHLORIDE
     Indication: VOMITING
  5. ATARAX-P                           /00058402/ [Suspect]
     Active Substance: HYDROXYZINE HYDROCHLORIDE
     Indication: INSOMNIA
     Dosage: 50 MG, UNK
     Route: 030
     Dates: start: 19880303
  6. ATARAX-P                           /00058402/ [Suspect]
     Active Substance: HYDROXYZINE HYDROCHLORIDE
     Dosage: 100 MG, UNK
     Route: 030
     Dates: start: 19880303
  7. TAGAMET [Suspect]
     Active Substance: CIMETIDINE
     Indication: VOMITING

REACTIONS (2)
  - CSF lactate increased [Recovered/Resolved]
  - Neuroleptic malignant syndrome [Recovered/Resolved]
